FAERS Safety Report 23488047 (Version 2)
Quarter: 2024Q1

REPORT INFORMATION
  Report Type: Report from Study
  Country: US (occurrence: US)
  Receive Date: 20240206
  Receipt Date: 20240207
  Transmission Date: 20240410
  Serious: No
  Sender: FDA-Public Use
  Company Number: US-BRISTOL-MYERS SQUIBB COMPANY-2024-019470

PATIENT
  Age: 43 Year
  Sex: Male

DRUGS (2)
  1. SOTYKTU [Suspect]
     Active Substance: DEUCRAVACITINIB
     Indication: Psoriasis
     Route: 048
     Dates: start: 202311
  2. SOTYKTU [Suspect]
     Active Substance: DEUCRAVACITINIB
     Indication: Psoriatic arthropathy

REACTIONS (1)
  - Dyspnoea [Unknown]
